FAERS Safety Report 20102136 (Version 1)
Quarter: 2021Q4

REPORT INFORMATION
  Report Type: Spontaneous
  Country: US (occurrence: None)
  Receive Date: 20211123
  Receipt Date: 20211123
  Transmission Date: 20220304
  Serious: Yes (Hospitalization)
  Sender: FDA-Public Use
  Company Number: None

PATIENT
  Sex: Female
  Weight: 85.2 kg

DRUGS (3)
  1. DARATUMUMAB\HYALURONIDASE-FIHJ [Suspect]
     Active Substance: DARATUMUMAB\HYALURONIDASE-FIHJ
     Indication: Product used for unknown indication
     Dates: end: 20211112
  2. DEXAMETHASONE [Suspect]
     Active Substance: DEXAMETHASONE
     Indication: Product used for unknown indication
     Dates: end: 20211112
  3. LENALIDOMIDE [Suspect]
     Active Substance: LENALIDOMIDE
     Indication: Product used for unknown indication
     Dates: end: 20211115

REACTIONS (9)
  - COVID-19 pneumonia [None]
  - Anticoagulation drug level above therapeutic [None]
  - Pleural effusion [None]
  - Chest X-ray abnormal [None]
  - Pulmonary oedema [None]
  - Lung consolidation [None]
  - Pneumonia bacterial [None]
  - Superinfection [None]
  - Cytokine release syndrome [None]

NARRATIVE: CASE EVENT DATE: 20211118
